FAERS Safety Report 7553887-8 (Version None)
Quarter: 2011Q2

REPORT INFORMATION
  Report Type: 
  Country: None (occurrence: None)
  Receive Date: 20110617
  Receipt Date: 20110607
  Transmission Date: 20111010
  Serious: Yes (Other)
  Sender: FDA-Public Use
  Company Number: FR-ELI_LILLY_AND_COMPANY-FR201106001518

PATIENT
  Sex: Female

DRUGS (5)
  1. METHOTREXATE [Concomitant]
     Dosage: UNK
     Route: 042
     Dates: start: 20101011, end: 20110101
  2. GEMZAR [Suspect]
     Indication: BREAST CANCER METASTATIC
     Dosage: UNK, UNKNOWN
     Route: 042
     Dates: start: 20100401
  3. FLUOROURACIL [Concomitant]
     Dosage: UNK
     Dates: start: 20101101
  4. TAXOL [Concomitant]
     Dosage: UNK, UNKNOWN
     Route: 042
     Dates: start: 20100401
  5. CYCLOPHOSPHAMIDE [Concomitant]
     Dosage: UNK
     Dates: start: 20101101

REACTIONS (2)
  - ATAXIA [None]
  - LEUKOENCEPHALOPATHY [None]
